FAERS Safety Report 5901619-9 (Version None)
Quarter: 2008Q3

REPORT INFORMATION
  Report Type: 
  Country: None (occurrence: None)
  Receive Date: 20080929
  Receipt Date: 20080923
  Transmission Date: 20090109
  Serious: Yes (Death)
  Sender: FDA-Public Use
  Company Number: US-GILEAD-2008-0018234

PATIENT
  Sex: Female
  Weight: 56.75 kg

DRUGS (13)
  1. LETAIRIS [Suspect]
     Indication: PULMONARY ARTERIAL HYPERTENSION
     Route: 048
     Dates: start: 20080202, end: 20080907
  2. NOVOLIN N [Concomitant]
  3. LACTULOSE [Concomitant]
     Dosage: 10 GM / 15 ML
     Route: 048
  4. CYMBALTA [Concomitant]
     Route: 048
  5. ZOLOFT [Concomitant]
     Route: 048
  6. LYRICA [Concomitant]
     Route: 048
  7. VICODIN [Concomitant]
     Dosage: 5/500
     Route: 048
  8. MIDODRINE HCL [Concomitant]
     Route: 048
  9. NEXIUM [Concomitant]
     Route: 048
  10. NEPHROCAPS [Concomitant]
  11. DURAGESIC-100 [Concomitant]
  12. SEVELAMER [Concomitant]
     Route: 048
  13. CALCIUM ACETATE [Concomitant]
     Route: 048

REACTIONS (1)
  - DEATH [None]
